FAERS Safety Report 9494000 (Version 1)
Quarter: 2013Q3

REPORT INFORMATION
  Report Type: Spontaneous
  Country: AU (occurrence: AU)
  Receive Date: 20130903
  Receipt Date: 20130903
  Transmission Date: 20140515
  Serious: Yes (Other)
  Sender: FDA-Public Use
  Company Number: AU-ROCHE-1269247

PATIENT
  Age: 72 Year
  Sex: Female

DRUGS (8)
  1. ALLOPURINOL [Suspect]
     Indication: PRODUCT USED FOR UNKNOWN INDICATION
     Dosage: QD
     Route: 048
     Dates: end: 20130424
  2. CEFTRIAXONE [Suspect]
     Indication: PRODUCT USED FOR UNKNOWN INDICATION
     Route: 042
     Dates: start: 20130423, end: 20130423
  3. AZITHROMYCIN [Concomitant]
  4. BRIMONIDINE TARTRATE [Concomitant]
  5. CARBIMAZOLE [Concomitant]
  6. CEFTAZIDIME [Concomitant]
  7. DIAZEPAM [Concomitant]
     Route: 065
  8. LATANOPROST [Concomitant]

REACTIONS (2)
  - Rash macular [Recovered/Resolved]
  - Pruritus [Recovered/Resolved]
